FAERS Safety Report 22012956 (Version 3)
Quarter: 2023Q1

REPORT INFORMATION
  Report Type: Spontaneous
  Country: BR (occurrence: BR)
  Receive Date: 20230220
  Receipt Date: 20230307
  Transmission Date: 20230418
  Serious: No
  Sender: FDA-Public Use
  Company Number: BR-TEVA-2022-BR-2065826

PATIENT
  Age: 36 Year
  Sex: Female

DRUGS (9)
  1. AUSTEDO [Suspect]
     Active Substance: DEUTETRABENAZINE
     Indication: Huntington^s disease
     Dosage: HALF A TABLET OF AUSTEDO AT NIGHT FOR 5 DAYS
     Route: 048
     Dates: start: 20230126
  2. AUSTEDO [Suspect]
     Active Substance: DEUTETRABENAZINE
     Dosage: 3MG OF AUSTEDO IN THE AFTERNOON FOR ANOTHER 5 DAYS
     Route: 048
     Dates: start: 2023
  3. AUSTEDO [Suspect]
     Active Substance: DEUTETRABENAZINE
     Dosage: 3MG OF AUSTEDO IN THE AFTERNOON FOR ANOTHER 5 DAYS AND ANOTHER HALF PILL OF AUSTEDO IN THE MORNING
     Route: 048
     Dates: start: 2023
  4. AUSTEDO [Suspect]
     Active Substance: DEUTETRABENAZINE
     Dosage: TAKING HALF A TABLET OF AUSTEDO IN THE MORNING AND AFTERNOON  (EQUIVALENT TO 3MG EACH TIME) ON 13-FE
     Route: 048
     Dates: start: 2023
  5. TETRABENAZINE [Concomitant]
     Active Substance: TETRABENAZINE
     Indication: Product used for unknown indication
     Dosage: 24MG OF TETRABENAZINE MORNING, AFTERNOON AND EVENING
     Route: 065
  6. TETRABENAZINE [Concomitant]
     Active Substance: TETRABENAZINE
     Dosage: 12MG IN THE MORNING AND 12MG IN THE AFTERNOON
     Route: 065
  7. SERTRALINE [Concomitant]
     Active Substance: SERTRALINE HYDROCHLORIDE
     Indication: Product used for unknown indication
  8. CLONAZEPAM [Concomitant]
     Active Substance: CLONAZEPAM
     Indication: Product used for unknown indication
  9. CYCLOBENZAPRINE [Concomitant]
     Active Substance: CYCLOBENZAPRINE
     Indication: Product used for unknown indication

REACTIONS (9)
  - Blister [Not Recovered/Not Resolved]
  - Gingival pain [Unknown]
  - Gingival bleeding [Unknown]
  - Drug hypersensitivity [Unknown]
  - Dyskinesia [Unknown]
  - Joint swelling [Unknown]
  - Off label use [Unknown]
  - Product prescribing error [Unknown]
  - Product prescribing issue [Unknown]

NARRATIVE: CASE EVENT DATE: 20230101
